FAERS Safety Report 8880278 (Version 2)
Quarter: 2013Q4

REPORT INFORMATION
  Report Type: Spontaneous
  Country: FR (occurrence: FR)
  Receive Date: 20121031
  Receipt Date: 20131122
  Transmission Date: 20140711
  Serious: Yes (Hospitalization)
  Sender: FDA-Public Use
  Company Number: FR-009507513-1210FRA014306

PATIENT
  Age: 60 Year
  Sex: Male

DRUGS (4)
  1. SINGULAIR [Suspect]
     Indication: ASTHMA
     Dosage: UNK
     Route: 048
     Dates: start: 201104, end: 20120823
  2. SYMBICORT TURBUHALER [Suspect]
     Indication: ASTHMA
     Dosage: UNK
     Dates: start: 201104, end: 20120823
  3. AIROMIR [Suspect]
     Indication: ASTHMA
     Dosage: UNK
     Dates: start: 201104, end: 20120823
  4. OMEPRAZOLE [Concomitant]
     Dosage: UNK

REACTIONS (1)
  - Hypersensitivity vasculitis [Unknown]
